FAERS Safety Report 5149592-8 (Version None)
Quarter: 2006Q4

REPORT INFORMATION
  Report Type: 
  Country: None (occurrence: None)
  Receive Date: 20061113
  Receipt Date: 20060525
  Transmission Date: 20070319
  Serious: No
  Sender: FDA-Public Use
  Company Number: US-GLAXOSMITHKLINE-A0606936A

PATIENT
  Age: 46 Year
  Sex: Female

DRUGS (5)
  1. COREG [Suspect]
     Indication: DRUG USE FOR UNKNOWN INDICATION
     Dosage: 25MG TWICE PER DAY
     Route: 048
     Dates: start: 20040901
  2. FUROSEMIDE [Concomitant]
  3. POTASSIUM ACETATE [Concomitant]
  4. HORMONE [Concomitant]
  5. PAXIL [Concomitant]

REACTIONS (6)
  - AMNESIA [None]
  - DEPRESSION [None]
  - FAT TISSUE INCREASED [None]
  - FATIGUE [None]
  - HEART RATE DECREASED [None]
  - WEIGHT INCREASED [None]
